FAERS Safety Report 14546919 (Version 1)
Quarter: 2018Q1

REPORT INFORMATION
  Report Type: Spontaneous
  Country: US (occurrence: US)
  Receive Date: 20180219
  Receipt Date: 20180219
  Transmission Date: 20180509
  Serious: No
  Sender: FDA-Public Use
  Company Number: US-PFIZER INC-2018065847

PATIENT
  Age: 30 Year
  Sex: Male

DRUGS (1)
  1. GENOTROPIN [Suspect]
     Active Substance: SOMATROPIN
     Dosage: UNK UNK, DAILY (0.2MG/0.25MG)

REACTIONS (2)
  - Arthralgia [Recovering/Resolving]
  - Bone pain [Recovering/Resolving]
